FAERS Safety Report 18149230 (Version 1)
Quarter: 2020Q3

REPORT INFORMATION
  Report Type: Report from Study
  Country: None (occurrence: US)
  Receive Date: 20200813
  Receipt Date: 20200813
  Transmission Date: 20201103
  Serious: Yes (Other)
  Sender: FDA-Public Use
  Company Number: US-ABBVIE-20K-163-3517592-00

PATIENT
  Age: 60 Year
  Sex: Female

DRUGS (1)
  1. HUMIRA [Suspect]
     Active Substance: ADALIMUMAB
     Indication: RHEUMATOID ARTHRITIS
     Route: 058

REACTIONS (18)
  - Osteomyelitis [Unknown]
  - Surgical failure [Unknown]
  - Sinus congestion [Unknown]
  - Spinal fusion surgery [Unknown]
  - Lacrimation increased [Unknown]
  - Neuralgia [Unknown]
  - Back disorder [Not Recovered/Not Resolved]
  - Post procedural complication [Unknown]
  - Gait disturbance [Not Recovered/Not Resolved]
  - Foot deformity [Unknown]
  - Rheumatoid arthritis [Unknown]
  - Sinus disorder [Not Recovered/Not Resolved]
  - Throat irritation [Unknown]
  - Toe operation [Unknown]
  - Musculoskeletal disorder [Not Recovered/Not Resolved]
  - Peripheral nerve injury [Not Recovered/Not Resolved]
  - Seasonal allergy [Unknown]
  - Dry eye [Unknown]

NARRATIVE: CASE EVENT DATE: 2008
